FAERS Safety Report 4372318-2 (Version None)
Quarter: 2004Q2

REPORT INFORMATION
  Report Type: 
  Country: None (occurrence: None)
  Receive Date: 20040602
  Receipt Date: 20040517
  Transmission Date: 20050107
  Serious: Yes (Other)
  Sender: FDA-Public Use
  Company Number: 2004-DE-02909GD

PATIENT
  Sex: Female

DRUGS (3)
  1. METHOTREXATE [Suspect]
     Indication: IRIDOCYCLITIS
     Dosage: 17.5 MG, WEEKLY
  2. PREDNISONE TAB [Suspect]
     Indication: IRIDOCYCLITIS
     Dosage: 32.5 MG, PO
     Route: 048
  3. CORTICOSTEROIDS (CORTICOSTEROIDS) [Suspect]
     Indication: IRIDOCYCLITIS
     Dosage: EVERY 2 HOURS, CO

REACTIONS (5)
  - DISEASE RECURRENCE [None]
  - IRIDOCYCLITIS [None]
  - MACULAR OEDEMA [None]
  - THERAPY NON-RESPONDER [None]
  - VISUAL ACUITY REDUCED [None]
